FAERS Safety Report 4659708-5 (Version None)
Quarter: 2005Q2

REPORT INFORMATION
  Report Type: 
  Country: None (occurrence: None)
  Receive Date: 20050420
  Receipt Date: 20050304
  Transmission Date: 20051028
  Serious: No
  Sender: FDA-Public Use
  Company Number: PHEH2005US02794

PATIENT
  Sex: Female

DRUGS (1)
  1. ENABLEX [Suspect]
     Dosage: ONCE/SINGLE
     Route: 048

REACTIONS (2)
  - DRY MOUTH [None]
  - DRY THROAT [None]
